FAERS Safety Report 6932004-9 (Version None)
Quarter: 2010Q3

REPORT INFORMATION
  Report Type: 
  Country: None (occurrence: None)
  Receive Date: 20100819
  Receipt Date: 20100816
  Transmission Date: 20110219
  Serious: Yes (Hospitalization)
  Sender: FDA-Public Use
  Company Number: FR-BRISTOL-MYERS SQUIBB COMPANY-15133747

PATIENT
  Age: 62 Year
  Sex: Female

DRUGS (10)
  1. APROVEL TABS [Suspect]
     Dosage: INTERRUPTED ON 20MAY2010 RE-INTRODUCED ON 21MAY2010
     Route: 048
     Dates: start: 20040801
  2. METFORMIN HCL [Suspect]
  3. OROCAL [Suspect]
     Route: 048
  4. DIGOXIN [Suspect]
  5. PREVISCAN [Suspect]
  6. FLUDEX [Suspect]
     Route: 048
  7. IPERTEN [Suspect]
  8. FOSAVANCE [Suspect]
  9. NOVOMIX [Concomitant]
  10. LEVEMIR [Concomitant]

REACTIONS (3)
  - BLOOD CREATINE PHOSPHOKINASE INCREASED [None]
  - MYALGIA [None]
  - RHABDOMYOLYSIS [None]
